FAERS Safety Report 17568110 (Version 1)
Quarter: 2020Q1

REPORT INFORMATION
  Report Type: Spontaneous
  Country: DE (occurrence: DE)
  Receive Date: 20200320
  Receipt Date: 20200320
  Transmission Date: 20200409
  Serious: Yes (Other)
  Sender: FDA-Public Use
  Company Number: DE-GUERBET-DE-20200029

PATIENT
  Sex: Female
  Weight: 55 kg

DRUGS (11)
  1. DOTAREM [Suspect]
     Active Substance: GADOTERATE MEGLUMINE
     Indication: MAGNETIC RESONANCE IMAGING BRAIN
     Route: 065
     Dates: start: 201206, end: 201206
  2. GADOVIST [Suspect]
     Active Substance: GADOBUTROL
     Indication: MAGNETIC RESONANCE IMAGING BRAIN
     Route: 065
     Dates: start: 201803, end: 201803
  3. GADOVIST [Suspect]
     Active Substance: GADOBUTROL
     Route: 065
     Dates: start: 201008, end: 201008
  4. GADOVIST [Suspect]
     Active Substance: GADOBUTROL
     Indication: ANGIOGRAM
     Route: 065
     Dates: start: 201901, end: 201901
  5. GADOVIST [Suspect]
     Active Substance: GADOBUTROL
     Indication: MAGNETIC RESONANCE IMAGING BREAST
     Route: 065
     Dates: start: 201705, end: 201705
  6. GADOVIST [Suspect]
     Active Substance: GADOBUTROL
     Route: 065
     Dates: start: 201307, end: 201307
  7. DOTAGITA [Suspect]
     Active Substance: GADOTERATE MEGLUMINE
     Indication: MAGNETIC RESONANCE IMAGING BRAIN
     Route: 065
     Dates: start: 201806, end: 201806
  8. GADOVIST [Suspect]
     Active Substance: GADOBUTROL
     Route: 065
     Dates: start: 201504, end: 201504
  9. MULTIHANCE [Suspect]
     Active Substance: GADOBENATE DIMEGLUMINE
     Indication: MAGNETIC RESONANCE IMAGING
     Route: 065
     Dates: start: 201712, end: 201712
  10. GADOVIST [Suspect]
     Active Substance: GADOBUTROL
     Route: 065
     Dates: start: 201703, end: 201703
  11. MAGNEVIST [Suspect]
     Active Substance: GADOPENTETATE DIMEGLUMINE
     Indication: MAGNETIC RESONANCE IMAGING BRAIN
     Route: 042
     Dates: start: 200610, end: 200610

REACTIONS (13)
  - Contrast media toxicity [Not Recovered/Not Resolved]
  - Dysgeusia [Not Recovered/Not Resolved]
  - Myalgia [Not Recovered/Not Resolved]
  - Headache [Not Recovered/Not Resolved]
  - Nontherapeutic agent blood positive [Unknown]
  - Restlessness [Not Recovered/Not Resolved]
  - Nontherapeutic agent urine positive [Unknown]
  - Skin odour abnormal [Not Recovered/Not Resolved]
  - Sleep disorder [Not Recovered/Not Resolved]
  - Feeling abnormal [Not Recovered/Not Resolved]
  - Heart rate increased [Not Recovered/Not Resolved]
  - Vertigo [Not Recovered/Not Resolved]
  - Abdominal pain upper [Not Recovered/Not Resolved]

NARRATIVE: CASE EVENT DATE: 201901
